FAERS Safety Report 8880412 (Version 2)
Quarter: 2013Q1

REPORT INFORMATION
  Report Type: Spontaneous
  Country: BR (occurrence: BR)
  Receive Date: 20121101
  Receipt Date: 20130321
  Transmission Date: 20140127
  Serious: Yes (Death, Hospitalization)
  Sender: FDA-Public Use
  Company Number: PHHY2012BR098550

PATIENT
  Age: 87 Year
  Sex: Male

DRUGS (1)
  1. HYDERGINE SRO [Suspect]
     Indication: CONVULSION
     Dosage: 1 DF (6MG), PER DAY
     Route: 048

REACTIONS (5)
  - Death [Fatal]
  - Convulsion [Not Recovered/Not Resolved]
  - Feeling abnormal [Unknown]
  - Blood glucose decreased [Unknown]
  - Amnesia [Not Recovered/Not Resolved]
